FAERS Safety Report 24381064 (Version 1)
Quarter: 2024Q3

REPORT INFORMATION
  Report Type: Spontaneous
  Country: EG (occurrence: EG)
  Receive Date: 20240930
  Receipt Date: 20240930
  Transmission Date: 20241017
  Serious: Yes (Hospitalization)
  Sender: AMGEN
  Company Number: EG-PFIZER INC-PV202400124678

PATIENT
  Age: 39 Year
  Sex: Female

DRUGS (5)
  1. ENBREL [Suspect]
     Active Substance: ETANERCEPT
     Indication: Rheumatoid arthritis
     Dosage: 50 MG, WEEKLY
     Route: 058
     Dates: start: 20231029
  2. METHOTREXATE [Concomitant]
     Active Substance: METHOTREXATE
     Indication: Product used for unknown indication
     Dosage: 2.5 MG (8 TABLETS ONCE A WEEK)
     Route: 065
  3. FOLIC ACID [Concomitant]
     Active Substance: FOLIC ACID
     Indication: Product used for unknown indication
     Dosage: 5 MG (2 TABLETS AFTER 2 DAYS OF ENBREL INJECTION)
     Route: 065
  4. COLCHICINE [Concomitant]
     Active Substance: COLCHICINE
     Indication: Product used for unknown indication
     Dosage: 500 MG, 2X/DAY (ONE TABLET AFTER BREAKFAST AND DINNER)
     Route: 065
  5. Arthrex [Concomitant]
     Indication: Product used for unknown indication
     Dosage: 200 MG, 1X/DAY(ONE CAPSULE AFTER DINNER)
     Route: 065

REACTIONS (3)
  - Joint deformity [Unknown]
  - Urticaria [Unknown]
  - Abscess [Unknown]
